FAERS Safety Report 13296667 (Version 2)
Quarter: 2017Q1

REPORT INFORMATION
  Report Type: Spontaneous
  Country: US (occurrence: US)
  Receive Date: 20170306
  Receipt Date: 20170309
  Transmission Date: 20170428
  Serious: No
  Sender: FDA-Public Use
  Company Number: ALCN2017US001767

PATIENT
  Age: 8 Month
  Sex: Male
  Weight: 8.16 kg

DRUGS (1)
  1. MOXEZA [Suspect]
     Active Substance: MOXIFLOXACIN HYDROCHLORIDE
     Indication: CONJUNCTIVITIS
     Dosage: 1 GTT, BID
     Route: 047
     Dates: start: 20170221, end: 20170223

REACTIONS (3)
  - Accidental exposure to product by child [Recovered/Resolved]
  - Drug ineffective [Recovered/Resolved]
  - Drug administered to patient of inappropriate age [Recovered/Resolved]

NARRATIVE: CASE EVENT DATE: 20170222
